FAERS Safety Report 22071156 (Version 4)
Quarter: 2023Q1

REPORT INFORMATION
  Report Type: Report from Study
  Country: US (occurrence: None)
  Receive Date: 20230307
  Receipt Date: 20230322
  Transmission Date: 20230417
  Serious: Yes (Death, Hospitalization)
  Sender: FDA-Public Use
  Company Number: US-ROCHE-3271622

PATIENT
  Age: 62 Year
  Sex: Male
  Weight: 103.97 kg

DRUGS (11)
  1. OCRELIZUMAB [Suspect]
     Active Substance: OCRELIZUMAB
     Indication: Progressive multiple sclerosis
     Dosage: DATE OF MOST RECENT DOSE OF OCRELIZUMAB PRIOR TO THIS AE/SAE 15/DEC/2022?DOSE OF LAST OCRELIZUMAB AD
     Route: 042
     Dates: start: 20210719
  2. TYLENOL [Concomitant]
     Active Substance: ACETAMINOPHEN
     Dosage: SUBSEQUENT DOSE ON: 02/AUG/2021, 12/JAN/2022,17/JUN/2022
     Route: 048
     Dates: start: 20210719
  3. XARELTO [Concomitant]
     Active Substance: RIVAROXABAN
     Indication: Deep vein thrombosis
     Route: 048
  4. LOTRIMIN (UNITED STATES) [Concomitant]
     Indication: Fungal infection
     Route: 061
  5. BENADRYL [Concomitant]
     Active Substance: DIPHENHYDRAMINE HYDROCHLORIDE
     Indication: Infusion related reaction
     Dosage: WEEK 2 (02/AUG/2021), WEEK 24 (12/JAN/2022), WEEK 48 (17/JUN/2022), WEEK 72 (15/DEC/2022)
     Route: 042
     Dates: start: 20210719, end: 20210719
  6. METHYLPREDNISOLONE [Concomitant]
     Active Substance: METHYLPREDNISOLONE
     Dosage: WEEK 2 (02/AUG/2021), WEEK 24 (12/JAN/2022), WEEK 48 (17/JUN/2022), WEEK 72 (15/DEC/2022-100MG)
     Route: 042
     Dates: start: 20210719, end: 20210719
  7. PEPCID [Concomitant]
     Active Substance: FAMOTIDINE
     Dosage: WEEK 24 (12/JAN/2022), WEEK 72 (15/DEC/2022)
     Route: 042
     Dates: start: 20210719
  8. ALLEGRA [Concomitant]
     Active Substance: FEXOFENADINE HYDROCHLORIDE
     Dosage: SUBSEQUENT DOSES ON: 12/JAN/2022, 17/JUN/2022
     Route: 048
     Dates: start: 20210802
  9. FAMOTIDINE [Concomitant]
     Active Substance: FAMOTIDINE
     Dosage: SUBSEQUENT DOSES ON: 17/JUN/2022
     Route: 042
     Dates: start: 20210802
  10. NEURONTIN [Concomitant]
     Active Substance: GABAPENTIN
     Indication: Back pain
     Route: 048
     Dates: start: 20220112
  11. ACETAMINOPHEN [Concomitant]
     Active Substance: ACETAMINOPHEN
     Route: 048
     Dates: start: 20221215

REACTIONS (1)
  - COVID-19 pneumonia [Fatal]

NARRATIVE: CASE EVENT DATE: 20221229
